FAERS Safety Report 8405799-5 (Version None)
Quarter: 2012Q2

REPORT INFORMATION
  Report Type: 
  Country: None (occurrence: None)
  Receive Date: 20120604
  Receipt Date: 20120530
  Transmission Date: 20120825
  Serious: No
  Sender: FDA-Public Use
  Company Number: US-PFIZER INC-2012130745

PATIENT
  Sex: Female

DRUGS (2)
  1. PRISTIQ [Suspect]
     Dosage: UNK, 1X/DAY
     Route: 048
     Dates: end: 20120524
  2. PRISTIQ [Suspect]
     Indication: PANIC DISORDER
     Dosage: 50 MG, 1X/DAY
     Route: 048
     Dates: start: 20090101

REACTIONS (4)
  - THINKING ABNORMAL [None]
  - FEELING ABNORMAL [None]
  - AMNESIA [None]
  - WITHDRAWAL SYNDROME [None]
